FAERS Safety Report 13396018 (Version 1)
Quarter: 2017Q2

REPORT INFORMATION
  Report Type: Spontaneous
  Country: US (occurrence: US)
  Receive Date: 20170403
  Receipt Date: 20170403
  Transmission Date: 20170830
  Serious: No
  Sender: FDA-Public Use
  Company Number: None

PATIENT
  Sex: Male
  Weight: 96.75 kg

DRUGS (2)
  1. ENBREL [Suspect]
     Active Substance: ETANERCEPT
     Indication: PSORIASIS
     Dosage: OTHER FREQUENCY:WEEKLY;?
     Route: 058
  2. ENBREL [Suspect]
     Active Substance: ETANERCEPT
     Indication: CONNECTIVE TISSUE DISORDER
     Dosage: OTHER FREQUENCY:WEEKLY;?
     Route: 058

REACTIONS (3)
  - Nausea [None]
  - Fatigue [None]
  - Pain [None]
